FAERS Safety Report 7276577-8 (Version None)
Quarter: 2011Q1

REPORT INFORMATION
  Report Type: 
  Country: None (occurrence: None)
  Receive Date: 20110204
  Receipt Date: 20110124
  Transmission Date: 20110831
  Serious: Yes (Hospitalization)
  Sender: FDA-Public Use
  Company Number: US-CELGENEUS-163-21880-10122594

PATIENT
  Sex: Female

DRUGS (3)
  1. REVLIMID [Suspect]
     Indication: MULTIPLE MYELOMA
     Route: 048
     Dates: start: 20100301
  2. REVLIMID [Suspect]
     Route: 048
     Dates: start: 20100301, end: 20100801
  3. DECADRON [Concomitant]
     Route: 048
     Dates: start: 20100301

REACTIONS (4)
  - PYREXIA [None]
  - ENTEROCOLITIS [None]
  - PANCYTOPENIA [None]
  - SALMONELLA BACTERAEMIA [None]
